FAERS Safety Report 16222636 (Version 1)
Quarter: 2019Q2

REPORT INFORMATION
  Report Type: Spontaneous
  Country: US (occurrence: US)
  Receive Date: 20190422
  Receipt Date: 20190422
  Transmission Date: 20190711
  Serious: No
  Sender: FDA-Public Use
  Company Number: US-PFIZER INC-2019165693

PATIENT
  Age: 65 Year
  Sex: Male

DRUGS (1)
  1. XELJANZ XR [Suspect]
     Active Substance: TOFACITINIB CITRATE
     Dosage: 11 MG, 1X/DAY (X30)
     Dates: start: 20190316

REACTIONS (5)
  - Cough [Unknown]
  - Pyrexia [Unknown]
  - Influenza like illness [Unknown]
  - Nasopharyngitis [Unknown]
  - Drug ineffective [Unknown]
